FAERS Safety Report 5474638-7 (Version None)
Quarter: 2007Q3

REPORT INFORMATION
  Report Type: 
  Country: None (occurrence: None)
  Receive Date: 20070831
  Receipt Date: 20070501
  Transmission Date: 20080115
  Serious: No
  Sender: FDA-Public Use
  Company Number: 240854

PATIENT
  Age: 78 Year
  Sex: Female

DRUGS (12)
  1. LUCENTIS [Suspect]
     Indication: DRUG USE FOR UNKNOWN INDICATION
     Dates: start: 20060717
  2. PREDNISONE TAB [Concomitant]
  3. ATROPINE [Concomitant]
  4. ASPIRIN [Concomitant]
  5. PREVACID [Concomitant]
  6. ZYRTEC [Concomitant]
  7. AMBIEN [Concomitant]
  8. LORAZEPAM [Concomitant]
  9. B12 COMPLEX (CYANOCOBALAMIN, VITAMIN B COMPLEX) [Concomitant]
  10. METAMUCIL (PSYLLIUM HUSK) [Concomitant]
  11. TYLENOL (CAPLET) [Concomitant]
  12. B COMPLEX (VITAMIN B COMPLEX) [Concomitant]

REACTIONS (1)
  - ARTHRALGIA [None]
